FAERS Safety Report 6662066-8 (Version None)
Quarter: 2010Q1

REPORT INFORMATION
  Report Type: 
  Country: None (occurrence: None)
  Receive Date: 20100331
  Receipt Date: 20100319
  Transmission Date: 20100710
  Serious: Yes (Death)
  Sender: FDA-Public Use
  Company Number: US-PFIZER INC-2010036748

PATIENT

DRUGS (1)
  1. ALDACTONE [Suspect]
     Indication: OEDEMA
     Dosage: UNK
     Route: 048

REACTIONS (1)
  - DEATH [None]
